FAERS Safety Report 4723535-0 (Version None)
Quarter: 2005Q3

REPORT INFORMATION
  Report Type: 
  Country: None (occurrence: None)
  Receive Date: 20050720
  Receipt Date: 20050720
  Transmission Date: 20060218
  Serious: Yes (Hospitalization)
  Sender: FDA-Public Use
  Company Number: None

PATIENT
  Age: 79 Year
  Sex: Male
  Weight: 92.0802 kg

DRUGS (7)
  1. CEFEPIME [Suspect]
     Indication: OSTEOMYELITIS
     Dosage: 1 G Q24H (IV)
     Route: 042
     Dates: start: 20041201, end: 20050201
  2. TOBRAMYCIN [Concomitant]
  3. RENAGEL [Concomitant]
  4. MIDODRINE HCL [Concomitant]
  5. INSULIN [Concomitant]
  6. GABAPENTIN [Concomitant]
  7. AMITRIPTYLINE HCL [Concomitant]

REACTIONS (2)
  - MENTAL STATUS CHANGES [None]
  - NEUROTOXICITY [None]
